FAERS Safety Report 5504865-1 (Version None)
Quarter: 2007Q4

REPORT INFORMATION
  Report Type: 
  Country: None (occurrence: None)
  Receive Date: 20071102
  Receipt Date: 20071031
  Transmission Date: 20080405
  Serious: Yes (Death)
  Sender: FDA-Public Use
  Company Number: HQWYE956331AUG07

PATIENT
  Sex: Male

DRUGS (11)
  1. AMIODARONE HCL [Suspect]
     Indication: ATRIAL FIBRILLATION
     Dosage: 2.5 MG/ML FOR 5 ML/MIN
     Route: 041
     Dates: start: 20070817, end: 20070817
  2. AMIODARONE HCL [Suspect]
     Dosage: 3 MG/ML FOR 16 ML/H
     Route: 041
     Dates: start: 20070817, end: 20070817
  3. AMIODARONE HCL [Suspect]
     Dosage: 3.0 MG/ML FOR 8 ML/H
     Route: 041
     Dates: start: 20070817, end: 20070819
  4. INOVAN [Concomitant]
     Dosage: DOSE AND FREQUENCY NOT SPECIFIED
     Route: 065
  5. MILRILA [Concomitant]
     Dosage: DOSE AND FREQUENCY NOT SPECIFIED
     Route: 048
  6. SIGMART [Concomitant]
     Dosage: DOSE AND FREQUENCY NOT SPECIFIED
     Route: 065
  7. DILTIAZEM HCL [Concomitant]
     Dosage: DOSE AND FREQUENCY NOT SPECIFIED
     Route: 065
  8. HUMALOG [Concomitant]
     Dosage: DOSE AND FREQUENCY NOT SPECIFIED
     Route: 065
  9. HANP [Concomitant]
     Dosage: DOSE AND FREQUENCY NOT SPECIFIED
     Route: 065
  10. DOBUTREX [Concomitant]
     Dosage: DOSE AND FREQUENCY NOT SPECIFIED
     Route: 065
  11. NORADRENALINE [Concomitant]
     Dosage: DOSE AND FREQUENCY NOT SPECIFIED
     Route: 065

REACTIONS (2)
  - GENERAL PHYSICAL HEALTH DETERIORATION [None]
  - MULTI-ORGAN FAILURE [None]
